FAERS Safety Report 8352573-4 (Version None)
Quarter: 2012Q2

REPORT INFORMATION
  Report Type: 
  Country: None (occurrence: None)
  Receive Date: 20120511
  Receipt Date: 20120509
  Transmission Date: 20120825
  Serious: Yes (Life-Threatening, Other)
  Sender: FDA-Public Use
  Company Number: PHHY2010BR72545

PATIENT
  Sex: Female

DRUGS (3)
  1. HYDERGINE [Suspect]
     Indication: PERIPHERAL VASCULAR DISORDER
     Dosage: 1 DF
     Route: 048
  2. DIOVAN [Concomitant]
     Indication: HYPERTENSION
     Dosage: 3 DF
     Route: 048
  3. ARTROLIVE [Concomitant]
     Indication: OSTEOARTHRITIS
     Dosage: 1 DF EVERY 12 HOURS
     Route: 048

REACTIONS (12)
  - FALL [None]
  - OSTEOARTHRITIS [None]
  - MUSCLE HERNIA [None]
  - NERVOUSNESS [None]
  - FEELING ABNORMAL [None]
  - CARTILAGE INJURY [None]
  - DISORIENTATION [None]
  - EMOTIONAL DISORDER [None]
  - BALANCE DISORDER [None]
  - BLOOD PRESSURE INCREASED [None]
  - MALAISE [None]
  - HEAD DISCOMFORT [None]
